FAERS Safety Report 10403227 (Version 2)
Quarter: 2014Q3

REPORT INFORMATION
  Report Type: Report from Study
  Country: DE (occurrence: DE)
  Receive Date: 20140822
  Receipt Date: 20140822
  Transmission Date: 20150326
  Serious: Yes (Other)
  Sender: FDA-Public Use
  Company Number: DE-CELGENEUS-062-21880-14054527

PATIENT
  Age: 54 Year
  Sex: Male
  Weight: 82 kg

DRUGS (41)
  1. CARFILZOMIB [Suspect]
     Active Substance: CARFILZOMIB
     Dosage: 27 MILLIGRAM
     Route: 065
     Dates: start: 20120625, end: 20121113
  2. FOSTER [Concomitant]
     Active Substance: BECLOMETHASONE\FORMOTEROL
     Indication: UPPER RESPIRATORY TRACT INFECTION
     Dosage: 100/6
     Route: 055
     Dates: start: 20130828
  3. IBUPROFEN. [Concomitant]
     Active Substance: IBUPROFEN
     Route: 048
     Dates: start: 20120625, end: 20120831
  4. IBUPROFEN. [Concomitant]
     Active Substance: IBUPROFEN
     Route: 048
     Dates: start: 20120901
  5. MAGNESIUM [Concomitant]
     Active Substance: MAGNESIUM
     Dates: start: 20120411, end: 20120709
  6. OXYGESIC [Concomitant]
     Active Substance: OXYCODONE
     Route: 048
     Dates: start: 20120710
  7. OCTAGAM IMMUNE GLOBULIN (HUMAN) [Concomitant]
     Active Substance: HUMAN IMMUNOGLOBULIN G
     Indication: UPPER RESPIRATORY TRACT INFECTION
     Route: 041
     Dates: start: 20120221
  8. BONDRONAT [Concomitant]
     Active Substance: IBANDRONIC ACID
     Indication: PROPHYLAXIS
     Route: 041
     Dates: start: 1999
  9. DUROGESIC [Concomitant]
     Active Substance: FENTANYL
     Indication: PAIN
     Route: 062
     Dates: start: 20121112
  10. FORMOTEROL [Concomitant]
     Active Substance: FORMOTEROL
     Indication: UPPER RESPIRATORY TRACT INFECTION
     Route: 055
     Dates: start: 20131113
  11. OXYGESIC [Concomitant]
     Active Substance: OXYCODONE
     Route: 048
     Dates: start: 20120625
  12. PANTOZOL [Concomitant]
     Active Substance: PANTOPRAZOLE SODIUM
     Dosage: 20 MILLIGRAM
     Route: 048
     Dates: start: 20120710
  13. MCP [Concomitant]
     Active Substance: METOCLOPRAMIDE HYDROCHLORIDE
     Indication: POLYNEUROPATHY
     Route: 048
     Dates: start: 20120723
  14. ASPIRIN. [Concomitant]
     Active Substance: ASPIRIN
     Indication: ANTICOAGULANT THERAPY
     Dosage: 100 MILLIGRAM
     Route: 065
     Dates: start: 20110725, end: 20130907
  15. AVALOX [Concomitant]
     Active Substance: MOXIFLOXACIN HYDROCHLORIDE
     Dosage: 400 MILLIGRAM
     Route: 048
     Dates: start: 20121126, end: 20121205
  16. MAGNESIUM [Concomitant]
     Active Substance: MAGNESIUM
     Indication: MUSCLE SPASMS
     Dates: start: 20111228, end: 20120410
  17. MAGNESIUM [Concomitant]
     Active Substance: MAGNESIUM
     Dates: start: 20120710
  18. TILIDIN/NALOXIN [Concomitant]
     Indication: POLYNEUROPATHY
     Dosage: 50/4
     Route: 048
     Dates: start: 20120611, end: 20120621
  19. DEXAMETHASONE. [Suspect]
     Active Substance: DEXAMETHASONE
     Indication: PLASMA CELL MYELOMA
     Route: 065
     Dates: start: 20080430, end: 20080519
  20. ALLOPURINOL. [Concomitant]
     Active Substance: ALLOPURINOL
     Indication: PROPHYLAXIS
     Route: 065
     Dates: start: 2003
  21. AVALOX [Concomitant]
     Active Substance: MOXIFLOXACIN HYDROCHLORIDE
     Dosage: 400 MILLIGRAM
     Route: 048
     Dates: start: 20130820, end: 20130830
  22. VALTREX [Concomitant]
     Active Substance: VALACYCLOVIR HYDROCHLORIDE
     Indication: ANTIVIRAL PROPHYLAXIS
     Route: 048
     Dates: start: 20110725
  23. OXYGESIC [Concomitant]
     Active Substance: OXYCODONE
     Indication: POLYNEUROPATHY
     Route: 048
     Dates: start: 20120709
  24. DEXAMETHASONE. [Suspect]
     Active Substance: DEXAMETHASONE
     Dosage: 40 MILLIGRAM
     Route: 065
     Dates: start: 20110725
  25. CARFILZOMIB [Suspect]
     Active Substance: CARFILZOMIB
     Dosage: 27 MILLIGRAM
     Route: 065
     Dates: start: 20110801, end: 20120612
  26. NASONEX [Concomitant]
     Active Substance: MOMETASONE FUROATE
     Indication: CHRONIC SINUSITIS
     Route: 045
     Dates: start: 20120410
  27. CLARITHROMYCIN. [Concomitant]
     Active Substance: CLARITHROMYCIN
     Indication: SOFT TISSUE INFECTION
     Route: 048
     Dates: start: 20121012
  28. LYRICA [Concomitant]
     Active Substance: PREGABALIN
     Route: 048
     Dates: start: 20120710
  29. TILIDIN/NALOXIN [Concomitant]
     Dosage: 50/4
     Route: 048
     Dates: start: 20120625
  30. PANTOZOL [Concomitant]
     Active Substance: PANTOPRAZOLE SODIUM
     Indication: PROPHYLAXIS
     Dosage: 40 MILLIGRAM
     Route: 048
     Dates: start: 20050606
  31. REVLIMID [Suspect]
     Active Substance: LENALIDOMIDE
     Indication: PLASMA CELL MYELOMA
     Dosage: 25 MILLIGRAM
     Route: 048
     Dates: start: 20110725, end: 20110814
  32. CARFILZOMIB [Suspect]
     Active Substance: CARFILZOMIB
     Indication: PLASMA CELL MYELOMA
     Dosage: 20 MILLIGRAM
     Route: 065
     Dates: start: 20110725, end: 20110726
  33. IBUPROFEN. [Concomitant]
     Active Substance: IBUPROFEN
     Indication: POLYNEUROPATHY
     Route: 048
     Dates: start: 20120611, end: 20120621
  34. LYRICA [Concomitant]
     Active Substance: PREGABALIN
     Route: 048
     Dates: start: 20120625
  35. REVLIMID [Suspect]
     Active Substance: LENALIDOMIDE
     Dosage: 25 MILLIGRAM
     Route: 048
     Dates: start: 20140423
  36. ASPIRIN. [Concomitant]
     Active Substance: ASPIRIN
     Indication: ANTIPLATELET THERAPY
     Dosage: 100 MILLIGRAM
     Route: 065
     Dates: start: 20131002
  37. AVALOX [Concomitant]
     Active Substance: MOXIFLOXACIN HYDROCHLORIDE
     Indication: UPPER RESPIRATORY TRACT INFECTION
     Dosage: 400 MILLIGRAM
     Route: 048
     Dates: start: 20120118, end: 20120206
  38. BECLOMETASON [Concomitant]
     Active Substance: BECLOMETHASONE DIPROPIONATE
     Indication: UPPER RESPIRATORY TRACT INFECTION
     Dosage: 800 MICROGRAM
     Route: 055
     Dates: start: 20140324
  39. TEPILTA [Concomitant]
     Active Substance: ALUMINUM HYDROXIDE\MAGNESIUM OXIDE\OXETHAZAINE
     Indication: DYSPEPSIA
     Dosage: 5.10
     Route: 048
     Dates: start: 20110112
  40. SALBUTAMOL [Concomitant]
     Active Substance: ALBUTEROL
     Indication: UPPER RESPIRATORY TRACT INFECTION
     Route: 055
     Dates: start: 20120206
  41. LYRICA [Concomitant]
     Active Substance: PREGABALIN
     Indication: POLYNEUROPATHY
     Dosage: 225 MILLIGRAM
     Route: 048
     Dates: start: 200802, end: 20120601

REACTIONS (1)
  - Hyperglycaemia [Recovered/Resolved]

NARRATIVE: CASE EVENT DATE: 20140507
